FAERS Safety Report 17214045 (Version 1)
Quarter: 2019Q4

REPORT INFORMATION
  Report Type: Spontaneous
  Country: TR (occurrence: TR)
  Receive Date: 20191230
  Receipt Date: 20191230
  Transmission Date: 20200122
  Serious: Yes (Other)
  Sender: FDA-Public Use
  Company Number: NVSC2019TR081406

PATIENT
  Age: 14 Year
  Sex: Male

DRUGS (2)
  1. METHOTREXATE. [Suspect]
     Active Substance: METHOTREXATE
     Indication: DERMATOMYOSITIS
     Dosage: UNK
     Route: 065
  2. METHYLPREDNISOLONE. [Suspect]
     Active Substance: METHYLPREDNISOLONE
     Indication: DERMATOMYOSITIS
     Dosage: UNK
     Route: 065

REACTIONS (8)
  - Calcinosis [Unknown]
  - Muscle atrophy [Unknown]
  - Muscular weakness [Unknown]
  - Malnutrition [Unknown]
  - Cellulitis [Unknown]
  - Pigmentation disorder [Unknown]
  - Ototoxicity [Unknown]
  - Product use in unapproved indication [Unknown]
